FAERS Safety Report 5719272-6 (Version None)
Quarter: 2008Q2

REPORT INFORMATION
  Report Type: 
  Country: None (occurrence: None)
  Receive Date: 20080428
  Receipt Date: 20080418
  Transmission Date: 20081010
  Serious: Yes (Hospitalization)
  Sender: FDA-Public Use
  Company Number: US-TYCO HEALTHCARE/MALLINCKRODT-T200800566

PATIENT

DRUGS (4)
  1. ULTRA-TECHNEKOW [Suspect]
     Indication: RADIOISOTOPE SCAN
     Dosage: 2.5 MCI, SINGLE
     Route: 050
     Dates: start: 20080318, end: 20080318
  2. TECHNETIUM (99M TC) DTPA [Suspect]
     Indication: RADIOISOTOPE SCAN
     Dosage: UNK, SINGLE
     Route: 050
     Dates: start: 20080318, end: 20080318
  3. LISINOPRIL [Concomitant]
  4. ASACOL [Concomitant]

REACTIONS (4)
  - CNS VENTRICULITIS [None]
  - CONFUSIONAL STATE [None]
  - HEADACHE [None]
  - MENINGITIS CHEMICAL [None]
